FAERS Safety Report 7885065-7 (Version None)
Quarter: 2011Q4

REPORT INFORMATION
  Report Type: 
  Country: None (occurrence: None)
  Receive Date: 20111102
  Receipt Date: 20100606
  Transmission Date: 20120403
  Serious: No
  Sender: FDA-Public Use
  Company Number: US-BAYER-201025016NA

PATIENT
  Age: 48 Year
  Sex: Female

DRUGS (2)
  1. AVELOX [Suspect]
     Indication: SINUSITIS
  2. AVELOX [Suspect]
     Indication: BRONCHITIS
     Dosage: 400 MG, QD
     Route: 048
     Dates: start: 20100605

REACTIONS (3)
  - OROPHARYNGEAL DISCOMFORT [None]
  - DYSPHONIA [None]
  - DYSPNOEA [None]
